FAERS Safety Report 7913975-0 (Version None)
Quarter: 2011Q4

REPORT INFORMATION
  Report Type: 
  Country: None (occurrence: None)
  Receive Date: 20111115
  Receipt Date: 20111103
  Transmission Date: 20120403
  Serious: Yes (Hospitalization)
  Sender: FDA-Public Use
  Company Number: US-BAYER-2011-013956

PATIENT
  Age: 42 Year
  Sex: Female
  Weight: 48.4 kg

DRUGS (5)
  1. YAZ [Suspect]
     Indication: PREMENSTRUAL SYNDROME
     Dosage: UNK
     Dates: start: 20070912, end: 20090217
  2. FISH OIL [Concomitant]
     Dosage: UNK
     Route: 048
  3. LORATADINE [Concomitant]
     Indication: HYPERSENSITIVITY
     Dosage: 10 MG, UNK
  4. GINSENG [Concomitant]
  5. GINKGO BILOBA [Concomitant]

REACTIONS (6)
  - PULMONARY EMBOLISM [None]
  - INJURY [None]
  - PAIN [None]
  - EMOTIONAL DISTRESS [None]
  - ANXIETY [None]
  - CHEST PAIN [None]
